FAERS Safety Report 9649202 (Version 1)
Quarter: 2013Q4

REPORT INFORMATION
  Report Type: Spontaneous
  Country: CA (occurrence: US)
  Receive Date: 20131028
  Receipt Date: 20131028
  Transmission Date: 20140711
  Serious: No
  Sender: FDA-Public Use
  Company Number: -SAAVPROD-POMP-1002573

PATIENT
  Age: 2 Year
  Sex: Female
  Weight: 15 kg

DRUGS (2)
  1. ALGLUCOSIDASE ALFA [Suspect]
     Indication: GLYCOGEN STORAGE DISEASE TYPE II
     Dosage: 40 MG/KG, UNK
     Dates: start: 20121112
  2. ALGLUCOSIDASE ALFA [Suspect]
     Indication: GLYCOGEN STORAGE DISEASE TYPE II
     Dosage: 20 MG/KG, UNK

REACTIONS (1)
  - Drug ineffective [Unknown]
